FAERS Safety Report 7770048-8 (Version None)
Quarter: 2011Q3

REPORT INFORMATION
  Report Type: 
  Country: None (occurrence: None)
  Receive Date: 20110922
  Receipt Date: 20110525
  Transmission Date: 20111222
  Serious: Yes (Hospitalization)
  Sender: FDA-Public Use
  Company Number: US-ASTRAZENECA-2011SE32001

PATIENT
  Age: 45 Year
  Sex: Male

DRUGS (5)
  1. ATENOLOL [Concomitant]
     Indication: HYPERTENSION
  2. LISINOPRIL [Concomitant]
     Indication: HYPERTENSION
  3. SEROQUEL XR [Suspect]
     Indication: BIPOLAR DISORDER
     Dosage: 50MG IN AM AND 50 MG  IN AFTERNOON
     Route: 048
     Dates: start: 20110518
  4. FLOMAX [Concomitant]
     Indication: PROSTATIC DISORDER
  5. SEROQUEL XR [Suspect]
     Route: 048
     Dates: start: 20110518

REACTIONS (2)
  - NEUROLEPTIC MALIGNANT SYNDROME [None]
  - EXTRAPYRAMIDAL DISORDER [None]
